FAERS Safety Report 19894018 (Version 1)
Quarter: 2021Q3

REPORT INFORMATION
  Report Type: Spontaneous
  Country: FR (occurrence: FR)
  Receive Date: 20210929
  Receipt Date: 20210929
  Transmission Date: 20211014
  Serious: Yes (Hospitalization)
  Sender: FDA-Public Use
  Company Number: FR-APOTEX-2021AP043632

PATIENT
  Sex: Male

DRUGS (2)
  1. DEROXAT [Suspect]
     Active Substance: PAROXETINE HYDROCHLORIDE
     Indication: PRODUCT USED FOR UNKNOWN INDICATION
     Dosage: UNK
     Route: 065
     Dates: start: 2010
  2. LORAZEPAM. [Interacting]
     Active Substance: LORAZEPAM
     Indication: PRODUCT USED FOR UNKNOWN INDICATION
     Dosage: UNK (3?0?1 SCHEME, REDUCING THE DOSE GRADUALLY TO HALF TABLET LESS/WEEK)
     Route: 065

REACTIONS (6)
  - Burnout syndrome [Unknown]
  - Drug ineffective [Unknown]
  - Drug interaction [Unknown]
  - Hospitalisation [Unknown]
  - Anxiety [Unknown]
  - Therapeutic product effect variable [Unknown]
